FAERS Safety Report 7075538-1 (Version None)
Quarter: 2010Q4

REPORT INFORMATION
  Report Type: 
  Country: None (occurrence: None)
  Receive Date: 20101030
  Receipt Date: 20100920
  Transmission Date: 20110411
  Serious: No
  Sender: FDA-Public Use
  Company Number: US-WYE-H17664410

PATIENT
  Sex: Male

DRUGS (4)
  1. PRISTIQ [Suspect]
     Dosage: UNKNOWN
     Dates: start: 20091101, end: 20100901
  2. PRISTIQ [Interacting]
     Dosage: INCREASED TO 2 TIMES DAILY
     Dates: start: 20100901
  3. CALCIUM PANTOTHENATE/NICOTINAMIDE/PYRIDOXINE HYDROCHLORIDE/RIBOFLAVIN/ [Interacting]
     Dosage: UNKNOWN
  4. BIOTIN [Interacting]
     Dosage: UNKNOWN

REACTIONS (4)
  - DRUG INTERACTION [None]
  - FATIGUE [None]
  - LOSS OF CONSCIOUSNESS [None]
  - SOMNOLENCE [None]
